FAERS Safety Report 8288794-9 (Version None)
Quarter: 2012Q2

REPORT INFORMATION
  Report Type: 
  Country: None (occurrence: None)
  Receive Date: 20120417
  Receipt Date: 20120406
  Transmission Date: 20120825
  Serious: No
  Sender: FDA-Public Use
  Company Number: US-BIOGENIDEC-2012BI012400

PATIENT
  Age: 62 Year
  Sex: Female

DRUGS (1)
  1. TYSABRI [Suspect]
     Indication: MULTIPLE SCLEROSIS
     Route: 042
     Dates: start: 20111114

REACTIONS (8)
  - TREMOR [None]
  - PANIC ATTACK [None]
  - ASTHENIA [None]
  - BACK PAIN [None]
  - DYSPHAGIA [None]
  - MOBILITY DECREASED [None]
  - ANXIETY [None]
  - PAIN [None]
